FAERS Safety Report 4378469-0 (Version None)
Quarter: 2004Q2

REPORT INFORMATION
  Report Type: 
  Country: None (occurrence: None)
  Receive Date: 20040609
  Receipt Date: 20040527
  Transmission Date: 20050107
  Serious: Yes (Hospitalization, Other)
  Sender: FDA-Public Use
  Company Number: 2004027925

PATIENT
  Age: 66 Year
  Sex: Male

DRUGS (6)
  1. LIPITOR [Suspect]
     Indication: HYPERLIPIDAEMIA
     Dosage: 5 MG (1 IN 1 D), ORAL
     Route: 048
     Dates: start: 20031202, end: 20040408
  2. TICLOPIDINE HCL [Suspect]
     Indication: ILL-DEFINED DISORDER
     Dosage: 200 MG (1 IN 1 D), ORAL
     Route: 048
     Dates: start: 20031202, end: 20040408
  3. ENALAPRIL MALEATE [Concomitant]
  4. ALLOPURINOL [Concomitant]
  5. AMLODIPINE BESYLATE [Concomitant]
  6. EPINASTINE HYDROCHLORIDE [Concomitant]

REACTIONS (20)
  - ALANINE AMINOTRANSFERASE INCREASED [None]
  - ASPARTATE AMINOTRANSFERASE INCREASED [None]
  - BLOOD ALBUMIN DECREASED [None]
  - BLOOD ALKALINE PHOSPHATASE INCREASED [None]
  - BLOOD LACTATE DEHYDROGENASE INCREASED [None]
  - C-REACTIVE PROTEIN INCREASED [None]
  - ECZEMA ASTEATOTIC [None]
  - EOSINOPHIL COUNT INCREASED [None]
  - EOSINOPHIL PERCENTAGE INCREASED [None]
  - HAEMATOCRIT DECREASED [None]
  - HAEMOGLOBIN DECREASED [None]
  - HEPATIC FUNCTION ABNORMAL [None]
  - MUSCLE NECROSIS [None]
  - MYOSITIS [None]
  - PAIN IN EXTREMITY [None]
  - PYREXIA [None]
  - RASH GENERALISED [None]
  - RED BLOOD CELL COUNT DECREASED [None]
  - RENAL IMPAIRMENT [None]
  - WHITE BLOOD CELL COUNT INCREASED [None]
